FAERS Safety Report 23218995 (Version 1)
Quarter: 2023Q4

REPORT INFORMATION
  Report Type: Spontaneous
  Country: GR (occurrence: GR)
  Receive Date: 20231122
  Receipt Date: 20231122
  Transmission Date: 20240110
  Serious: Yes (Hospitalization)
  Sender: FDA-Public Use
  Company Number: GR-ALNYLAM PHARMACEUTICALS, INC.-ALN-2023-006215

PATIENT

DRUGS (1)
  1. ONPATTRO [Suspect]
     Active Substance: PATISIRAN SODIUM
     Indication: Hereditary neuropathic amyloidosis
     Dosage: UNK (TOTAL OF 6 INFUSIONS)
     Route: 065
     Dates: start: 20230628

REACTIONS (1)
  - Leg amputation [Not Recovered/Not Resolved]
